FAERS Safety Report 7077193-3 (Version None)
Quarter: 2010Q4

REPORT INFORMATION
  Report Type: 
  Country: None (occurrence: None)
  Receive Date: 20101101
  Receipt Date: 20101022
  Transmission Date: 20110411
  Serious: Yes (Hospitalization)
  Sender: FDA-Public Use
  Company Number: B0682101A

PATIENT
  Sex: Female

DRUGS (4)
  1. PROPAFENONE HCL [Suspect]
     Indication: ATRIAL FIBRILLATION
     Dosage: 200MG PER DAY
     Route: 042
     Dates: start: 20100527, end: 20100527
  2. LEVOTHYROXINE [Concomitant]
     Indication: HYPOTHYROIDISM
  3. PRITOR [Concomitant]
     Indication: HYPERTENSION
  4. ENOXAPARIN SODIUM [Concomitant]
     Dates: start: 20100527, end: 20100527

REACTIONS (2)
  - BRADYCARDIA [None]
  - HYPOTENSION [None]
